FAERS Safety Report 22102900 (Version 1)
Quarter: 2023Q1

REPORT INFORMATION
  Report Type: Spontaneous
  Country: CN (occurrence: CN)
  Receive Date: 20230316
  Receipt Date: 20230316
  Transmission Date: 20230417
  Serious: Yes (Other)
  Sender: FDA-Public Use
  Company Number: CN-PFIZER INC-202300107756

PATIENT
  Age: 72 Year
  Sex: Female

DRUGS (1)
  1. AROMASIN [Suspect]
     Active Substance: EXEMESTANE
     Indication: Breast cancer female
     Dosage: 1 DF, 1X/DAY (AFTER MEAL EVERY DAY)
     Route: 048

REACTIONS (4)
  - Osteoporosis [Unknown]
  - Fracture [Unknown]
  - Off label use [Unknown]
  - Product use issue [Unknown]
